FAERS Safety Report 8258641-X (Version None)
Quarter: 2012Q2

REPORT INFORMATION
  Report Type: 
  Country: None (occurrence: None)
  Receive Date: 20120404
  Receipt Date: 20120321
  Transmission Date: 20120825
  Serious: Yes (Hospitalization, Other)
  Sender: FDA-Public Use
  Company Number: KN-RANBAXY-2012RR-54239

PATIENT
  Age: 60 Year
  Sex: Female

DRUGS (1)
  1. CEFADROXIL [Suspect]
     Indication: UPPER RESPIRATORY TRACT INFECTION
     Dosage: 500 MG, SINGLE
     Route: 048

REACTIONS (7)
  - DYSPHONIA [None]
  - URTICARIA [None]
  - SWOLLEN TONGUE [None]
  - CHEST DISCOMFORT [None]
  - ANGIOEDEMA [None]
  - DYSPNOEA [None]
  - BRONCHOSPASM [None]
